FAERS Safety Report 8037883-2 (Version None)
Quarter: 2012Q1

REPORT INFORMATION
  Report Type: 
  Country: None (occurrence: None)
  Receive Date: 20120111
  Receipt Date: 20120103
  Transmission Date: 20120608
  Serious: Yes (Hospitalization)
  Sender: FDA-Public Use
  Company Number: FR-BAXTER-2012BH000540

PATIENT
  Age: 35 Year
  Sex: Male

DRUGS (9)
  1. PS PRODUCT NOT LISTED [Concomitant]
     Indication: PROPHYLAXIS
     Route: 048
     Dates: start: 20111114, end: 20111214
  2. DELURSAN [Concomitant]
     Indication: PRODUCT USED FOR UNKNOWN INDICATION
     Route: 065
     Dates: start: 20111116
  3. BUSULFAN [Suspect]
     Indication: BONE MARROW CONDITIONING REGIMEN
     Route: 042
     Dates: start: 20111119, end: 20111119
  4. CYCLOPHOSPHAMIDE [Suspect]
     Indication: BONE MARROW CONDITIONING REGIMEN
     Route: 042
     Dates: start: 20111121, end: 20111122
  5. BUSULFAN [Suspect]
     Route: 042
     Dates: start: 20111118, end: 20111118
  6. BUSULFAN [Suspect]
     Route: 042
     Dates: start: 20111117, end: 20111117
  7. VANCOMYCIN [Concomitant]
     Indication: PRODUCT USED FOR UNKNOWN INDICATION
     Route: 042
     Dates: start: 20111115, end: 20111216
  8. ALLOPURINOL [Concomitant]
     Indication: PRODUCT USED FOR UNKNOWN INDICATION
     Route: 065
     Dates: start: 20111116
  9. BUSULFAN [Suspect]
     Route: 042
     Dates: start: 20111116, end: 20111116

REACTIONS (1)
  - VENOOCCLUSIVE LIVER DISEASE [None]
